FAERS Safety Report 7411242-5 (Version None)
Quarter: 2011Q2

REPORT INFORMATION
  Report Type: 
  Country: None (occurrence: None)
  Receive Date: 20110413
  Receipt Date: 20100420
  Transmission Date: 20111010
  Serious: No
  Sender: FDA-Public Use
  Company Number: US-BRISTOL-MYERS SQUIBB COMPANY-15072010

PATIENT

DRUGS (1)
  1. ERBITUX [Suspect]

REACTIONS (4)
  - SKIN EXFOLIATION [None]
  - ERYTHEMA [None]
  - SKIN LESION [None]
  - SWELLING [None]
